FAERS Safety Report 6579901-4 (Version None)
Quarter: 2010Q1

REPORT INFORMATION
  Report Type: 
  Country: None (occurrence: None)
  Receive Date: 20100212
  Receipt Date: 20100204
  Transmission Date: 20100710
  Serious: Yes (Other)
  Sender: FDA-Public Use
  Company Number: GXKR2010GB01532

PATIENT
  Age: 77 Year
  Sex: Male
  Weight: 71 kg

DRUGS (5)
  1. PRAVASTATIN SODIUM [Suspect]
     Indication: PROPHYLAXIS
     Dosage: 40 MG, UNK
     Route: 048
     Dates: start: 20090701, end: 20091228
  2. ADCAL-D3 [Concomitant]
     Route: 065
  3. RISEDRONIC ACID [Concomitant]
     Route: 065
  4. RISEDRONATE SODIUM [Concomitant]
     Route: 065
  5. TEMAZEPAM [Concomitant]
     Route: 065

REACTIONS (2)
  - COGNITIVE DISORDER [None]
  - CONFUSIONAL STATE [None]
